FAERS Safety Report 7003250-3 (Version None)
Quarter: 2010Q3

REPORT INFORMATION
  Report Type: 
  Country: None (occurrence: None)
  Receive Date: 20100920
  Receipt Date: 20100916
  Transmission Date: 20110219
  Serious: No
  Sender: FDA-Public Use
  Company Number: US-ROXANE LABORATORIES, INC.-2010-RO-01237RO

PATIENT
  Sex: Female

DRUGS (2)
  1. FLUTICASONE PROPIONATE [Suspect]
     Indication: RHINITIS
     Route: 045
     Dates: start: 20100908
  2. FLUTICASONE PROPIONATE [Suspect]
     Indication: EAR CONGESTION

REACTIONS (6)
  - ABDOMINAL PAIN [None]
  - DIZZINESS [None]
  - HEADACHE [None]
  - HERPES SIMPLEX [None]
  - HOT FLUSH [None]
  - NAUSEA [None]
